FAERS Safety Report 24613081 (Version 1)
Quarter: 2024Q4

REPORT INFORMATION
  Report Type: Spontaneous
  Country: US (occurrence: US)
  Receive Date: 20241113
  Receipt Date: 20241113
  Transmission Date: 20250115
  Serious: No
  Sender: JOHNSON AND JOHNSON
  Company Number: US-JNJFOC-20241104264

PATIENT
  Age: 8 Year
  Sex: Male

DRUGS (2)
  1. RISPERDAL [Suspect]
     Active Substance: RISPERIDONE
     Indication: Generalised anxiety disorder
     Dosage: 0.5 MG TABLETS (HALF IN THE MORNING AND 1 AT BED TIME)
     Route: 048
     Dates: start: 20130430, end: 20130530
  2. RISPERIDONE [Suspect]
     Active Substance: RISPERIDONE
     Indication: Product used for unknown indication
     Route: 048

REACTIONS (3)
  - Weight increased [Unknown]
  - Feeling jittery [Unknown]
  - Off label use [Unknown]

NARRATIVE: CASE EVENT DATE: 20130401
